FAERS Safety Report 18445020 (Version 2)
Quarter: 2021Q1

REPORT INFORMATION
  Report Type: Spontaneous
  Country: DE (occurrence: DE)
  Receive Date: 20201030
  Receipt Date: 20210121
  Transmission Date: 20210419
  Serious: Yes (Other)
  Sender: FDA-Public Use
  Company Number: NVSC2020DE290515

PATIENT
  Age: 11 Year
  Sex: Female

DRUGS (2)
  1. PREDNISOLONE. [Suspect]
     Active Substance: PREDNISOLONE
     Indication: HYPERCALCAEMIA
     Dosage: HIGH DOSE
     Route: 048
  2. PREDNISOLONE. [Suspect]
     Active Substance: PREDNISOLONE
     Indication: PRERENAL FAILURE
     Dosage: 0.25 MG/KG, QD (DOSE LOWERED TO)
     Route: 048

REACTIONS (2)
  - Product use in unapproved indication [Unknown]
  - Cushing^s syndrome [Not Recovered/Not Resolved]
